FAERS Safety Report 6239731-X (Version None)
Quarter: 2009Q2

REPORT INFORMATION
  Report Type: 
  Country: None (occurrence: None)
  Receive Date: 20090619
  Receipt Date: 20090605
  Transmission Date: 20091009
  Serious: Yes (Death, Other)
  Sender: FDA-Public Use
  Company Number: 2009AL003829

PATIENT
  Age: 30 Year
  Sex: Male

DRUGS (11)
  1. EPIRUBICIN HYDROCHLORIDE INJECTION, 2MG/ML PACKAGED IN 200MG/100ML SIN [Suspect]
     Indication: EPSTEIN-BARR VIRUS ASSOCIATED LYMPHOPROLIFERATIVE DISORDER
  2. SULFATRIM PEDIATRIC [Suspect]
     Indication: PROPHYLAXIS
  3. RANITIDINE [Suspect]
     Indication: PROPHYLAXIS
  4. ACYCLOVIR [Suspect]
  5. FLUCONAZOLE [Concomitant]
  6. VALACYCLOVIR HCL [Concomitant]
  7. PREDNISONE TAB [Concomitant]
  8. CYCLOPHOSPHAMIDE [Concomitant]
  9. ETOPOSIDE [Concomitant]
  10. VINCRISTINE [Concomitant]
  11. BLEOMYCIN SULFATE [Concomitant]

REACTIONS (2)
  - DISEASE PROGRESSION [None]
  - EPSTEIN-BARR VIRUS ASSOCIATED LYMPHOPROLIFERATIVE DISORDER [None]
